FAERS Safety Report 9086710 (Version 1)
Quarter: 2013Q1

REPORT INFORMATION
  Report Type: Report from Study
  Country: US (occurrence: US)
  Receive Date: 20130130
  Receipt Date: 20130130
  Transmission Date: 20140127
  Serious: No
  Sender: FDA-Public Use
  Company Number: US-ABBOTT-12P-163-0979943-00

PATIENT
  Age: 59 Year
  Sex: Female

DRUGS (1)
  1. HUMIRA [Suspect]
     Indication: ACCIDENTAL EXPOSURE TO PRODUCT
     Route: 058
     Dates: start: 20120913, end: 20120913

REACTIONS (4)
  - Injury associated with device [Recovered/Resolved]
  - Accidental exposure to product [Recovered/Resolved]
  - Wrong technique in drug usage process [Unknown]
  - Incorrect route of drug administration [Unknown]
